FAERS Safety Report 5994255-X (Version None)
Quarter: 2008Q4

REPORT INFORMATION
  Report Type: 
  Country: None (occurrence: None)
  Receive Date: 20081212
  Receipt Date: 20080904
  Transmission Date: 20090506
  Serious: No
  Sender: FDA-Public Use
  Company Number: US-ABBOTT-08P-163-0474293-00

PATIENT
  Sex: Female

DRUGS (2)
  1. HUMIRA [Suspect]
     Indication: PSORIASIS
     Route: 058
     Dates: start: 20080903, end: 20080905
  2. HUMIRA [Suspect]
     Route: 058
     Dates: start: 20080910

REACTIONS (1)
  - ACCIDENTAL EXPOSURE [None]
